FAERS Safety Report 4709576-8 (Version None)
Quarter: 2005Q3

REPORT INFORMATION
  Report Type: 
  Country: None (occurrence: None)
  Receive Date: 20050706
  Receipt Date: 20050706
  Transmission Date: 20060218
  Serious: Yes (Disabling)
  Sender: FDA-Public Use
  Company Number: None

PATIENT
  Age: 65 Year
  Sex: Male
  Weight: 77.1115 kg

DRUGS (1)
  1. BOTOX ALLERGAN [Suspect]
     Indication: TORTICOLLIS
     Dosage: 90 DAY INTRAMUSCULAR
     Route: 030
     Dates: start: 20030901, end: 20040401

REACTIONS (19)
  - APHASIA [None]
  - ASTHENIA [None]
  - BALANCE DISORDER [None]
  - CERVICAL SPINAL STENOSIS [None]
  - DYSKINESIA [None]
  - DYSPHAGIA [None]
  - GAIT DISTURBANCE [None]
  - GASTROINTESTINAL MOTILITY DISORDER [None]
  - HYPOAESTHESIA [None]
  - INJECTION SITE REACTION [None]
  - MOBILITY DECREASED [None]
  - MUSCULAR WEAKNESS [None]
  - NEUROPATHY [None]
  - OESOPHAGEAL STENOSIS [None]
  - PARAESTHESIA [None]
  - PARALYSIS [None]
  - SHOULDER PAIN [None]
  - THERAPEUTIC AGENT TOXICITY [None]
  - TREMOR [None]
